FAERS Safety Report 8407216-8 (Version None)
Quarter: 2012Q2

REPORT INFORMATION
  Report Type: 
  Country: None (occurrence: None)
  Receive Date: 20120604
  Receipt Date: 20120521
  Transmission Date: 20120825
  Serious: Yes (Life-Threatening, Other)
  Sender: FDA-Public Use
  Company Number: JP-ROCHE-1067451

PATIENT
  Sex: Male
  Weight: 60 kg

DRUGS (17)
  1. OXALIPLATIN [Suspect]
     Route: 041
     Dates: start: 20120330, end: 20120330
  2. MUCOSTA [Concomitant]
     Dosage: DOSAGE IS UNCERTAIN.
     Route: 048
  3. NAPROXEN [Concomitant]
     Dosage: DOSAGE IS UNCERTAIN.
     Route: 048
  4. TAMSULOSIN HCL [Concomitant]
     Indication: BENIGN PROSTATIC HYPERPLASIA
     Dosage: DOSAGE IS UNCERTAIN.
     Route: 048
  5. AMARYL [Suspect]
     Indication: DIABETES MELLITUS
     Dosage: DOSAGE IS UNCERTAIN.
     Route: 048
     Dates: end: 20120430
  6. XELODA [Suspect]
     Route: 048
     Dates: start: 20120203, end: 20120216
  7. REZALTAS [Suspect]
     Indication: HYPERTENSION
     Dosage: DOSAGE IS UNCERTAIN.
     Route: 048
     Dates: end: 20120430
  8. XELODA [Suspect]
     Route: 048
     Dates: start: 20120420, end: 20120429
  9. OXALIPLATIN [Suspect]
     Route: 041
     Dates: start: 20120420, end: 20120420
  10. NICORANDIL [Suspect]
     Indication: ANGINA PECTORIS
     Dosage: DOSAGE IS UNCERTAIN.
     Route: 048
     Dates: end: 20120430
  11. XELODA [Suspect]
     Indication: RECTAL CANCER METASTATIC
     Route: 048
     Dates: start: 20120112, end: 20120125
  12. LANSOPRAZOLE [Suspect]
     Indication: PRODUCT USED FOR UNKNOWN INDICATION
     Dosage: DOSAGE IS UNCERTAIN.
     Route: 048
     Dates: end: 20120430
  13. OXALIPLATIN [Suspect]
     Indication: RECTAL CANCER METASTATIC
     Route: 041
     Dates: start: 20120112, end: 20120112
  14. JANUVIA [Suspect]
     Indication: DIABETES MELLITUS
     Dosage: DOSAGE IS UNCERTAIN.
     Route: 048
     Dates: end: 20120430
  15. INDAPAMIDE [Suspect]
     Indication: HYPERTENSION
     Dosage: DOSAGE IS UNCERTAIN.
     Route: 048
     Dates: end: 20120430
  16. XELODA [Suspect]
     Route: 048
     Dates: start: 20120330, end: 20120412
  17. OXALIPLATIN [Suspect]
     Route: 041
     Dates: start: 20120203, end: 20120203

REACTIONS (4)
  - DRUG-INDUCED LIVER INJURY [None]
  - HEPATIC FAILURE [None]
  - HEPATIC ENCEPHALOPATHY [None]
  - DISSEMINATED INTRAVASCULAR COAGULATION [None]
